FAERS Safety Report 5951133-X (Version None)
Quarter: 2008Q4

REPORT INFORMATION
  Report Type: 
  Country: None (occurrence: None)
  Receive Date: 20081112
  Receipt Date: 20081112
  Transmission Date: 20090506
  Serious: Yes (Other)
  Sender: FDA-Public Use
  Company Number: None

PATIENT
  Sex: Female
  Weight: 73.4827 kg

DRUGS (1)
  1. OXCARBAZEPINE [Suspect]
     Indication: PARTIAL SEIZURES
     Dosage: 750 MG/DAY -300 A.M., 450 P.M. BID PO
     Route: 048
     Dates: start: 20080630, end: 20080708

REACTIONS (6)
  - DRUG LEVEL DECREASED [None]
  - DRUG TOXICITY [None]
  - FATIGUE [None]
  - FEELING ABNORMAL [None]
  - PARTIAL SEIZURES [None]
  - PRODUCT QUALITY ISSUE [None]
